FAERS Safety Report 7100344-9 (Version None)
Quarter: 2010Q4

REPORT INFORMATION
  Report Type: 
  Country: None (occurrence: None)
  Receive Date: 20101112
  Receipt Date: 20100714
  Transmission Date: 20110411
  Serious: Yes (Other)
  Sender: FDA-Public Use
  Company Number: US-MERCK-1007USA01466

PATIENT
  Age: 85 Year
  Sex: Female

DRUGS (1)
  1. FOSAMAX [Suspect]
     Route: 048

REACTIONS (6)
  - ABDOMINAL PAIN UPPER [None]
  - ARTHRALGIA [None]
  - HYPERTENSION [None]
  - LYMPHOMA [None]
  - NON-HODGKIN'S LYMPHOMA [None]
  - TRANSIENT ISCHAEMIC ATTACK [None]
